FAERS Safety Report 7476781-X (Version None)
Quarter: 2011Q2

REPORT INFORMATION
  Report Type: 
  Country: None (occurrence: None)
  Receive Date: 20110512
  Receipt Date: 20110511
  Transmission Date: 20111010
  Serious: Yes (Death)
  Sender: FDA-Public Use
  Company Number: NO-PFIZER INC-2011100637

PATIENT
  Age: 87 Year
  Sex: Female

DRUGS (14)
  1. ZOLPIDEM TARTRATE [Concomitant]
     Route: 048
  2. HALDOL [Concomitant]
  3. NOVOMIX [Suspect]
     Indication: HYPERGLYCAEMIA
     Dosage: 6-8 IE PER DAY
     Route: 058
     Dates: start: 20110307, end: 20110311
  4. PREDNISOLONE [Concomitant]
     Route: 048
     Dates: start: 20110301
  5. METOPROLOL TARTRATE [Concomitant]
     Route: 048
  6. HUMALOG [Concomitant]
     Route: 058
  7. PARACET [Concomitant]
     Route: 048
  8. TRIOBE [Concomitant]
     Route: 048
  9. SIMVASTATIN [Concomitant]
     Route: 048
  10. NORVASC [Suspect]
     Indication: HYPERTENSION
     Route: 048
     Dates: start: 20110315, end: 20110403
  11. PANTOPRAZOLE [Concomitant]
     Route: 048
  12. BUMETANIDE [Concomitant]
     Route: 048
  13. ZYRTEC [Concomitant]
     Route: 048
  14. CALCIGRAN FORTE [Concomitant]
     Dosage: UNK
     Route: 048

REACTIONS (1)
  - TOXIC EPIDERMAL NECROLYSIS [None]
